FAERS Safety Report 18732106 (Version 1)
Quarter: 2021Q1

REPORT INFORMATION
  Report Type: Report from Study
  Country: None (occurrence: US)
  Receive Date: 20210112
  Receipt Date: 20210112
  Transmission Date: 20210419
  Serious: Yes (Other)
  Sender: FDA-Public Use
  Company Number: US-ABBVIE-20K-163-3496022-00

PATIENT
  Sex: Male

DRUGS (2)
  1. VENCLEXTA [Suspect]
     Active Substance: VENETOCLAX
     Indication: ACUTE MYELOID LEUKAEMIA
     Route: 048
     Dates: start: 202005, end: 2020
  2. VENCLEXTA [Suspect]
     Active Substance: VENETOCLAX
     Route: 048
     Dates: start: 202005, end: 2020

REACTIONS (12)
  - Neuropathy peripheral [Unknown]
  - Blood glucose decreased [Unknown]
  - Malabsorption [Unknown]
  - Dysuria [Unknown]
  - Renal injury [Unknown]
  - Dizziness [Unknown]
  - Hypotension [Unknown]
  - Renal injury [Unknown]
  - Renal pain [Unknown]
  - Dehydration [Unknown]
  - Renal failure [Unknown]
  - Renal cyst [Unknown]

NARRATIVE: CASE EVENT DATE: 2020
